FAERS Safety Report 22149017 (Version 2)
Quarter: 2023Q2

REPORT INFORMATION
  Report Type: Report from Study
  Country: CA (occurrence: CA)
  Receive Date: 20230328
  Receipt Date: 20230516
  Transmission Date: 20230722
  Serious: Yes (Other)
  Sender: FDA-Public Use
  Company Number: CA-002147023-NVSC2023CA068969

PATIENT
  Sex: Female

DRUGS (1)
  1. AIMOVIG [Suspect]
     Active Substance: ERENUMAB-AOOE
     Indication: Migraine
     Dosage: UNK
     Route: 042
     Dates: start: 20211109, end: 202208

REACTIONS (4)
  - Hemiparesis [Unknown]
  - Balance disorder [Unknown]
  - Dysstasia [Unknown]
  - Dizziness [Unknown]
